FAERS Safety Report 8615675-0 (Version None)
Quarter: 2012Q3

REPORT INFORMATION
  Report Type: 
  Country: None (occurrence: None)
  Receive Date: 20120823
  Receipt Date: 20120813
  Transmission Date: 20120928
  Serious: Yes (Other)
  Sender: FDA-Public Use
  Company Number: US-ARROW-2012-14571

PATIENT
  Age: 3 Year

DRUGS (1)
  1. TACROLIMUS [Suspect]
     Indication: HEART TRANSPLANT
     Dosage: UNK UNK, UNKNOWN
     Route: 065

REACTIONS (2)
  - POSTERIOR REVERSIBLE ENCEPHALOPATHY SYNDROME [None]
  - HAEMORRHAGE INTRACRANIAL [None]
